FAERS Safety Report 5899048-X (Version None)
Quarter: 2008Q3

REPORT INFORMATION
  Report Type: 
  Country: None (occurrence: None)
  Receive Date: 20080925
  Receipt Date: 20080912
  Transmission Date: 20090109
  Serious: Yes (Other)
  Sender: FDA-Public Use
  Company Number: US-ELI_LILLY_AND_COMPANY-US200809002949

PATIENT
  Sex: Female
  Weight: 155 kg

DRUGS (7)
  1. STRATTERA [Suspect]
     Indication: ATTENTION DEFICIT/HYPERACTIVITY DISORDER
     Dosage: 80 MG, DAILY (1/D)
     Dates: start: 20061001, end: 20071026
  2. STRATTERA [Suspect]
     Dosage: 40 MG, DAILY (1/D)
     Dates: start: 20080801
  3. PAXIL [Concomitant]
     Dosage: 12.5 MG, UNK
     Dates: start: 20080907
  4. ADDERALL 10 [Concomitant]
     Dosage: 15 MG, UNK
     Dates: start: 20070901
  5. TRAZODONE HCL [Concomitant]
     Indication: POST-TRAUMATIC STRESS DISORDER
  6. ZOLOFT [Concomitant]
     Indication: DEPRESSION
     Dosage: 200 MG, UNK
     Dates: start: 20061201
  7. ZOLOFT [Concomitant]
     Dosage: 1 D/F, UNK
     Dates: start: 20080101

REACTIONS (9)
  - ANOREXIA [None]
  - DRUG EXPOSURE DURING PREGNANCY [None]
  - HEPATIC ENZYME INCREASED [None]
  - HEPATIC PAIN [None]
  - HYPERHIDROSIS [None]
  - MALAISE [None]
  - VOMITING [None]
  - WEIGHT DECREASED [None]
  - WITHDRAWAL SYNDROME [None]
